FAERS Safety Report 9761225 (Version 1)
Quarter: 2013Q4

REPORT INFORMATION
  Report Type: Spontaneous
  Country: CA (occurrence: None)
  Receive Date: 20131212
  Receipt Date: 20131212
  Transmission Date: 20140711
  Serious: Yes (Other)
  Sender: FDA-Public Use
  Company Number: SYM-2013-13781

PATIENT
  Age: 65 Year
  Sex: Male

DRUGS (1)
  1. CICLOPIROX [Suspect]
     Indication: NEOPLASM MALIGNANT
     Dosage: 5 MG/M2, ONCE DAILY FOR 5 DAYS, INCREASING DOSES, ORAL
     Route: 048

REACTIONS (5)
  - Gastrointestinal haemorrhage [None]
  - Nausea [None]
  - Vomiting [None]
  - Acute myeloid leukaemia [None]
  - Gastrointestinal inflammation [None]
